FAERS Safety Report 6664663-2 (Version None)
Quarter: 2010Q1

REPORT INFORMATION
  Report Type: 
  Country: None (occurrence: None)
  Receive Date: 20100330
  Receipt Date: 20100323
  Transmission Date: 20100710
  Serious: Yes (Disabling)
  Sender: FDA-Public Use
  Company Number: 2009S1000388-005

PATIENT
  Age: 68 Year
  Sex: Female

DRUGS (6)
  1. PITAVASTATIN CALCIUM [Suspect]
     Indication: HYPERLIPIDAEMIA
     Dosage: 1MG, PO
     Route: 048
     Dates: start: 20090629, end: 20091118
  2. AZELNIDIPINE [Suspect]
     Indication: HYPERTENSION
     Dosage: 16MG, PO
     Route: 048
     Dates: start: 20070717, end: 20091225
  3. MECOBALAMIN [Suspect]
     Indication: LACUNAR INFARCTION
     Dosage: 1500MG, PO
     Route: 048
     Dates: start: 20091118, end: 20091225
  4. ATORVASTATIN CALCIUM HYDRATE [Concomitant]
  5. OLMESARTAN MEDOXOMIL [Concomitant]
  6. ACETYLSALICYLIC ACID [Concomitant]

REACTIONS (1)
  - WHITE BLOOD CELL COUNT DECREASED [None]
